FAERS Safety Report 8792709 (Version 1)
Quarter: 2012Q4

REPORT INFORMATION
  Report Type: 
  Country: US (occurrence: US)
  Receive Date: 20120918
  Receipt Date: 20120918
  Transmission Date: 20130627
  Serious: Yes (Hospitalization)
  Sender: FDA-Public Use
  Company Number: US-GLAXOSMITHKLINE-A0993112A

PATIENT
  Age: 66 Year
  Sex: Female

DRUGS (3)
  1. ADVAIR [Suspect]
     Indication: CHRONIC OBSTRUCTIVE PULMONARY DISEASE
     Dosage: 1PUFF Twice per day
     Route: 055
     Dates: start: 2006
  2. SPIRIVA [Concomitant]
  3. VENTOLIN HFA [Concomitant]

REACTIONS (1)
  - Pneumothorax [Recovered/Resolved]
